FAERS Safety Report 7657563-2 (Version None)
Quarter: 2011Q3

REPORT INFORMATION
  Report Type: 
  Country: None (occurrence: None)
  Receive Date: 20110804
  Receipt Date: 20110722
  Transmission Date: 20111222
  Serious: Yes (Hospitalization, Other)
  Sender: FDA-Public Use
  Company Number: US-AMGEN-USASP2011030161

PATIENT
  Age: 53 Year
  Sex: Female

DRUGS (1)
  1. ENBREL [Suspect]
     Indication: RHEUMATOID ARTHRITIS
     Dosage: 50 MG, QWK
     Dates: start: 20031101

REACTIONS (5)
  - RHEUMATOID ARTHRITIS [None]
  - HIP ARTHROPLASTY [None]
  - DEVICE DISLOCATION [None]
  - ARTHRALGIA [None]
  - PYREXIA [None]
